FAERS Safety Report 13530371 (Version 1)
Quarter: 2017Q2

REPORT INFORMATION
  Report Type: Spontaneous
  Country: US (occurrence: US)
  Receive Date: 20170509
  Receipt Date: 20170509
  Transmission Date: 20170830
  Serious: No
  Sender: FDA-Public Use
  Company Number: US-ASTRAZENECA-2017SE49351

PATIENT
  Sex: Female
  Weight: 135.6 kg

DRUGS (3)
  1. SYMBICORT [Suspect]
     Active Substance: BUDESONIDE\FORMOTEROL FUMARATE DIHYDRATE
     Indication: CHRONIC OBSTRUCTIVE PULMONARY DISEASE
     Dosage: 160 4.5 MCG TWO TIMES A DAY
     Route: 055
     Dates: start: 201612
  2. LANTUS [Concomitant]
     Active Substance: INSULIN GLARGINE
     Indication: DIABETES MELLITUS
     Dosage: TWO TIMES A DAY
     Route: 058
  3. NOVOLOG SLIDING SCALE [Concomitant]
     Indication: DIABETES MELLITUS
     Dosage: BEFORE MEALS
     Route: 058

REACTIONS (6)
  - Malaise [Unknown]
  - Pulmonary congestion [Unknown]
  - Sinus disorder [Unknown]
  - Headache [Unknown]
  - Drug ineffective [Unknown]
  - Lung disorder [Unknown]
